FAERS Safety Report 24216374 (Version 1)
Quarter: 2024Q3

REPORT INFORMATION
  Report Type: Spontaneous
  Country: EG (occurrence: EG)
  Receive Date: 20240816
  Receipt Date: 20240816
  Transmission Date: 20241016
  Serious: Yes (Other)
  Sender: MYLAN
  Company Number: EG-MYLANLABS-2024M1074737

PATIENT
  Age: 24 Year
  Sex: Male
  Weight: 120 kg

DRUGS (6)
  1. VENLAFAXINE HYDROCHLORIDE [Suspect]
     Active Substance: VENLAFAXINE HYDROCHLORIDE
     Indication: Depressed mood
     Dosage: 75 MILLIGRAM, QD
     Route: 048
     Dates: start: 20240623, end: 20240719
  2. VENLAFAXINE HYDROCHLORIDE [Suspect]
     Active Substance: VENLAFAXINE HYDROCHLORIDE
     Indication: Apathy
  3. CLOZAPINE [Concomitant]
     Active Substance: CLOZAPINE
     Dosage: 125 MILLIGRAM, QD (STABLIZED ON FOR PAST 8 MONTHS)
     Route: 048
  4. INVEGA SUSTENNA [Concomitant]
     Active Substance: PALIPERIDONE PALMITATE
     Dosage: 150 MILLIGRAM, MONTHLY (STABLIZED ON FOR PAST 8 MONTHS)
     Route: 030
  5. PROZAC [Concomitant]
     Active Substance: FLUOXETINE HYDROCHLORIDE
     Indication: Depressed mood
     Dosage: 20 MILLIGRAM, QD (STABLIZED ON FOR PAST 8 MONTHS)
     Route: 048
  6. PROZAC [Concomitant]
     Active Substance: FLUOXETINE HYDROCHLORIDE
     Indication: Apathy

REACTIONS (2)
  - Psychotic symptom [Recovered/Resolved]
  - Condition aggravated [Recovered/Resolved]

NARRATIVE: CASE EVENT DATE: 20240630
